FAERS Safety Report 15889419 (Version 1)
Quarter: 2019Q1

REPORT INFORMATION
  Report Type: Spontaneous
  Country: US (occurrence: US)
  Receive Date: 20190109
  Receipt Date: 20190109
  Transmission Date: 20190417
  Serious: Yes (Death)
  Sender: FDA-Public Use
  Company Number: None

PATIENT
  Age: 14 Year
  Sex: Male

DRUGS (2)
  1. ETOPOSIDE 50MG CAPSULES [Suspect]
     Active Substance: ETOPOSIDE
     Indication: RENAL CELL CARCINOMA
     Route: 048
     Dates: start: 20181120
  2. VOTRIENT [Suspect]
     Active Substance: PAZOPANIB HYDROCHLORIDE
     Indication: RENAL CELL CARCINOMA
     Route: 048
     Dates: start: 20180911

REACTIONS (1)
  - Death [None]
